FAERS Safety Report 22156792 (Version 1)
Quarter: 2023Q1

REPORT INFORMATION
  Report Type: Spontaneous
  Country: FR (occurrence: FR)
  Receive Date: 20230330
  Receipt Date: 20230330
  Transmission Date: 20230418
  Serious: Yes (Hospitalization)
  Sender: FDA-Public Use
  Company Number: None

PATIENT
  Age: 60 Year
  Sex: Female
  Weight: 95 kg

DRUGS (27)
  1. CLINDAMYCIN HYDROCHLORIDE [Suspect]
     Active Substance: CLINDAMYCIN HYDROCHLORIDE
     Indication: Osteitis
     Dosage: 1200 MG, 1X/DAY
     Route: 048
     Dates: start: 20230303, end: 20230306
  2. LINEZOLID [Suspect]
     Active Substance: LINEZOLID
     Indication: Osteitis
     Dosage: 1200 MG, 1X/DAY
     Route: 042
     Dates: start: 20230306, end: 20230307
  3. URAPIDIL [Suspect]
     Active Substance: URAPIDIL
     Indication: Osteitis
     Dosage: 120 MG, 1X/DAY
     Route: 048
     Dates: start: 20230228, end: 20230307
  4. OFLOXACIN [Suspect]
     Active Substance: OFLOXACIN
     Indication: Osteitis
     Dosage: 800 MG, 1X/DAY
     Route: 042
     Dates: start: 20230222, end: 20230306
  5. RIFAMPIN [Suspect]
     Active Substance: RIFAMPIN
     Indication: Osteitis
     Dosage: 1200 MG, 1X/DAY
     Route: 048
     Dates: start: 20230126, end: 20230304
  6. AMPHOTERICIN B [Concomitant]
     Active Substance: AMPHOTERICIN B
  7. POTASSIUM CHLORIDE [Concomitant]
     Active Substance: POTASSIUM CHLORIDE
  8. REMIFENTANIL HYDROCHLORIDE [Concomitant]
     Active Substance: REMIFENTANIL HYDROCHLORIDE
  9. LERCANIDIPINE [Concomitant]
     Active Substance: LERCANIDIPINE
  10. METFORMIN HYDROCHLORIDE [Concomitant]
     Active Substance: METFORMIN HYDROCHLORIDE
  11. ACETAMINOPHEN [Concomitant]
     Active Substance: ACETAMINOPHEN
  12. KARDEGIC [Concomitant]
     Active Substance: ASPIRIN DL-LYSINE
  13. CALCIUM PHOSPHATE, DIBASIC, ANHYDROUS\MAGNESIUM GLYCEROPHOSPHATE\PHOSP [Concomitant]
     Active Substance: CALCIUM PHOSPHATE, DIBASIC, ANHYDROUS\MAGNESIUM GLYCEROPHOSPHATE\PHOSPHORIC ACID\SODIUM PHOSPHATE, D
  14. PROPOFOL [Concomitant]
     Active Substance: PROPOFOL
  15. LOVENOX [Concomitant]
     Active Substance: ENOXAPARIN SODIUM
  16. TRAMADOL HCL [Concomitant]
     Active Substance: TRAMADOL HYDROCHLORIDE
  17. INSULIN GLARGINE [Concomitant]
     Active Substance: INSULIN GLARGINE
  18. NICARDIPINE HYDROCHLORIDE [Concomitant]
     Active Substance: NICARDIPINE HYDROCHLORIDE
  19. TRULICITY [Concomitant]
     Active Substance: DULAGLUTIDE
  20. CLOPIDOGREL HYDROCHLORIDE [Concomitant]
     Active Substance: CLOPIDOGREL HYDROCHLORIDE
  21. METOCLOPRAMIDE [Concomitant]
     Active Substance: METOCLOPRAMIDE
  22. CHOLECALCIFEROL [Concomitant]
     Active Substance: CHOLECALCIFEROL
  23. HEPARIN SODIUM [Concomitant]
     Active Substance: HEPARIN SODIUM
  24. GLICLAZIDE [Concomitant]
     Active Substance: GLICLAZIDE
  25. DAPTOMYCIN [Concomitant]
     Active Substance: DAPTOMYCIN
  26. PANTOPRAZOLE [Concomitant]
     Active Substance: PANTOPRAZOLE
  27. ONDANSETRON [Concomitant]
     Active Substance: ONDANSETRON

REACTIONS (2)
  - Rash maculo-papular [Recovered/Resolved]
  - Off label use [Unknown]

NARRATIVE: CASE EVENT DATE: 20230303
